FAERS Safety Report 5971782-2 (Version None)
Quarter: 2008Q4

REPORT INFORMATION
  Report Type: 
  Country: None (occurrence: None)
  Receive Date: 20081201
  Receipt Date: 20081121
  Transmission Date: 20090506
  Serious: Yes (Other)
  Sender: FDA-Public Use
  Company Number: US-BAYER-200813527BCC

PATIENT
  Age: 76 Year
  Sex: Female
  Weight: 53 kg

DRUGS (8)
  1. ALEVE [Suspect]
     Indication: ARTHRALGIA
     Dosage: TOTAL DAILY DOSE: 440 MG  UNIT DOSE: 220 MG
     Route: 048
  2. LISINOPRIL [Concomitant]
     Dosage: TOTAL DAILY DOSE: 20 MG  UNIT DOSE: 20 MG
  3. HYDROCHLOROTHIAZIDE [Concomitant]
     Dosage: TOTAL DAILY DOSE: 25 MG  UNIT DOSE: 25 MG
  4. BLOOD PRESSURE MEDICATION [Concomitant]
  5. PRILOSEC [Concomitant]
     Dosage: TOTAL DAILY DOSE: 20 MG  UNIT DOSE: 20 MG
  6. CLARITIN [Concomitant]
  7. ADVAIR HFA [Concomitant]
  8. ALBUTEROL [Concomitant]

REACTIONS (4)
  - GASTRITIS [None]
  - GASTRITIS EROSIVE [None]
  - HIATUS HERNIA [None]
  - ULCER HAEMORRHAGE [None]
